FAERS Safety Report 8422219-5 (Version None)
Quarter: 2012Q2

REPORT INFORMATION
  Report Type: 
  Country: None (occurrence: None)
  Receive Date: 20120608
  Receipt Date: 20120515
  Transmission Date: 20120825
  Serious: No
  Sender: FDA-Public Use
  Company Number: US-BAYER-2012-049108

PATIENT

DRUGS (2)
  1. ALEVE (CAPLET) [Suspect]
     Indication: DYSMENORRHOEA
     Dosage: 4 DF, UNK
     Route: 048
  2. ASPIRIN [Suspect]
     Indication: DYSMENORRHOEA
     Dosage: 2 DF, UNK
     Route: 048

REACTIONS (1)
  - MUSCLE SPASMS [None]
